FAERS Safety Report 5136373-4 (Version None)
Quarter: 2006Q4

REPORT INFORMATION
  Report Type: 
  Country: None (occurrence: None)
  Receive Date: 20061027
  Receipt Date: 20060831
  Transmission Date: 20070319
  Serious: Yes (Hospitalization)
  Sender: FDA-Public Use
  Company Number: FR-SANOFI-SYNTHELABO-A02200602261

PATIENT
  Age: 68 Year
  Sex: Male
  Weight: 69 kg

DRUGS (10)
  1. AMLOR [Concomitant]
     Indication: HYPERTENSION
     Dosage: UNK
     Route: 048
  2. FORTZAAR [Concomitant]
     Indication: HYPERTENSION
     Dosage: UNK
     Route: 048
  3. DIAMICRON [Concomitant]
     Indication: DIABETES MELLITUS NON-INSULIN-DEPENDENT
     Dosage: UNK
     Route: 048
  4. IKOREL [Concomitant]
     Indication: HYPERTENSION
     Dosage: UNK
     Route: 048
  5. HYPERIUM [Concomitant]
     Indication: HYPERTENSION
     Dosage: UNK
     Route: 048
  6. GLUCOPHAGE [Concomitant]
     Indication: DIABETES MELLITUS NON-INSULIN-DEPENDENT
     Dosage: UNK
     Route: 048
  7. LODALES [Concomitant]
     Indication: HYPERCHOLESTEROLAEMIA
     Dosage: UNK
     Route: 048
  8. TRANDATE [Concomitant]
     Indication: HYPERTENSION
     Dosage: UNK
     Route: 048
  9. ASPIRIN [Concomitant]
     Indication: DRUG USE FOR UNKNOWN INDICATION
     Route: 048
     Dates: start: 20060401
  10. PLAVIX [Suspect]
     Indication: STENT PLACEMENT
     Route: 048
     Dates: start: 20060401

REACTIONS (10)
  - AGEUSIA [None]
  - BLOOD CALCIUM INCREASED [None]
  - ERUCTATION [None]
  - GAIT DISTURBANCE [None]
  - GENERAL PHYSICAL HEALTH DETERIORATION [None]
  - METASTASES TO BONE [None]
  - NAUSEA [None]
  - RED BLOOD CELL SEDIMENTATION RATE INCREASED [None]
  - RENAL CANCER METASTATIC [None]
  - WEIGHT DECREASED [None]
